FAERS Safety Report 16930878 (Version 1)
Quarter: 2019Q4

REPORT INFORMATION
  Report Type: Spontaneous
  Country: GB (occurrence: GB)
  Receive Date: 20191017
  Receipt Date: 20191017
  Transmission Date: 20200122
  Serious: Yes (Hospitalization)
  Sender: FDA-Public Use
  Company Number: GB-MYLANLABS-2019M1097489

PATIENT
  Age: 77 Year
  Sex: Female

DRUGS (3)
  1. PHENOBARBITAL. [Interacting]
     Active Substance: PHENOBARBITAL
     Indication: EPILEPSY
     Dosage: 90 MILLIGRAM, QD
  2. CAPECITABINE. [Suspect]
     Active Substance: CAPECITABINE
     Indication: GASTROINTESTINAL CARCINOMA
     Dosage: FOR 2 WEEKS EACH MONTH X2 CYCLES
     Route: 048
  3. PHENYTOIN. [Interacting]
     Active Substance: PHENYTOIN
     Indication: EPILEPSY
     Dosage: 350 MILLIGRAM, QD
     Route: 048

REACTIONS (6)
  - Toxicity to various agents [Not Recovered/Not Resolved]
  - Gait disturbance [Unknown]
  - Drug interaction [Unknown]
  - Nystagmus [Unknown]
  - Memory impairment [Unknown]
  - Speech disorder [Unknown]
